FAERS Safety Report 9281784 (Version 1)
Quarter: 2013Q2

REPORT INFORMATION
  Report Type: Spontaneous
  Country: GR (occurrence: GR)
  Receive Date: 20130510
  Receipt Date: 20130510
  Transmission Date: 20140414
  Serious: Yes (Hospitalization)
  Sender: FDA-Public Use
  Company Number: GR-B.I. PHARMACEUTICALS,INC./RIDGEFIELD-2013-BI-12197GB

PATIENT
  Age: 89 Year
  Sex: Male

DRUGS (7)
  1. PRADAXA [Suspect]
     Indication: ATRIAL FIBRILLATION
     Dosage: 2 ANZ
     Dates: end: 20130408
  2. CARVEPEN [Concomitant]
     Dosage: 0.5 ANZ
  3. DIGOXIN [Concomitant]
     Dosage: 0.5 ANZ
  4. OMNIC TOCAS [Concomitant]
     Dosage: 1 ANZ
  5. FINAR [Concomitant]
     Dosage: 5 MG
  6. LASIX [Concomitant]
     Dosage: 40 MG
  7. VESICARE [Concomitant]
     Dosage: 5 MG

REACTIONS (1)
  - Gastrointestinal haemorrhage [Recovered/Resolved]
